FAERS Safety Report 13580820 (Version 4)
Quarter: 2017Q3

REPORT INFORMATION
  Report Type: Spontaneous
  Country: US (occurrence: US)
  Receive Date: 20170525
  Receipt Date: 20170919
  Transmission Date: 20171127
  Serious: Yes (Other)
  Sender: FDA-Public Use
  Company Number: US-SUN PHARMACEUTICAL INDUSTRIES LTD-2017US-141496

PATIENT
  Age: 87 Year
  Sex: Male

DRUGS (1)
  1. OCTREOTIDE. [Suspect]
     Active Substance: OCTREOTIDE
     Indication: COLON CANCER
     Dosage: PATIENT HAD RECEIVED 3 DOSES
     Route: 058

REACTIONS (1)
  - Neutropenia [Recovered/Resolved]
